FAERS Safety Report 12633444 (Version 2)
Quarter: 2016Q3

REPORT INFORMATION
  Report Type: Report from Study
  Country: BR (occurrence: BR)
  Receive Date: 20160808
  Receipt Date: 20160818
  Transmission Date: 20161109
  Serious: Yes (Hospitalization, Other)
  Sender: FDA-Public Use
  Company Number: PHHY2016BR107504

PATIENT
  Age: 52 Year
  Sex: Female
  Weight: 98 kg

DRUGS (9)
  1. FORASEQ [Suspect]
     Active Substance: BUDESONIDE\FORMOTEROL FUMARATE
     Indication: BRONCHITIS
  2. HYDROCHLOROTHIAZIDE. [Concomitant]
     Active Substance: HYDROCHLOROTHIAZIDE
     Indication: HYPERTENSION
     Dosage: 25 MG, QD (1 YEAR AGO)
     Route: 048
  3. LOSARTAN. [Concomitant]
     Active Substance: LOSARTAN
     Indication: HYPERTENSION
     Dosage: 2 DF, QD (6 YEARS AGO)
     Route: 048
  4. ASA [Concomitant]
     Active Substance: ASPIRIN
     Indication: THROMBOSIS
     Dosage: 1 DF, QD (USE 5 OR 6 YEARS AGO)
     Route: 048
  5. SERTRALINE [Concomitant]
     Active Substance: SERTRALINE HYDROCHLORIDE
     Indication: ANXIETY
     Dosage: 50 MG, QD (THREE YEARS AGO)
     Route: 048
  6. FORASEQ [Suspect]
     Active Substance: BUDESONIDE\FORMOTEROL FUMARATE
     Indication: ASTHMA
     Dosage: 2 DF, BID (FORMOTEROL FUMARATE 400UG, BUDESONIDE 12UG,), (2 DF IN MORNING AND 2 DF IN AFTERNOON)
     Route: 055
  7. METHYLDOPA. [Concomitant]
     Active Substance: METHYLDOPA
     Indication: HYPERTENSION
     Dosage: 3 DF, QD (USE 4 OR 5 YEARS AGO)
     Route: 048
  8. SIMVASTATIN. [Concomitant]
     Active Substance: SIMVASTATIN
     Indication: CHEST PAIN
     Dosage: 2 DF, QD (5 YEARS AGO)
     Route: 048
  9. RANITIDINE. [Concomitant]
     Active Substance: RANITIDINE
     Indication: PROPHYLAXIS
     Dosage: 2 DF, QD (1 MONTH AGO)
     Route: 048

REACTIONS (10)
  - Chest pain [Recovering/Resolving]
  - Myocardial infarction [Recovering/Resolving]
  - Cardiac arrest [Recovering/Resolving]
  - Confusional state [Recovering/Resolving]
  - Cognitive disorder [Recovering/Resolving]
  - Malaise [Unknown]
  - Asthma [Recovered/Resolved]
  - Venous occlusion [Recovering/Resolving]
  - Diabetes mellitus [Not Recovered/Not Resolved]
  - Asthmatic crisis [Unknown]

NARRATIVE: CASE EVENT DATE: 20160712
